FAERS Safety Report 13517691 (Version 1)
Quarter: 2017Q2

REPORT INFORMATION
  Report Type: Spontaneous
  Country: US (occurrence: US)
  Receive Date: 20170505
  Receipt Date: 20170505
  Transmission Date: 20170830
  Serious: No
  Sender: FDA-Public Use
  Company Number: US-PFIZER INC-2017199197

PATIENT
  Age: 58 Year
  Sex: Female

DRUGS (1)
  1. SPIRONOLACTONE. [Suspect]
     Active Substance: SPIRONOLACTONE
     Dosage: UNK

REACTIONS (4)
  - Flank pain [Unknown]
  - Blood pressure increased [Not Recovered/Not Resolved]
  - Urine analysis abnormal [Unknown]
  - Chromaturia [Unknown]
